FAERS Safety Report 9318364 (Version 1)
Quarter: 2012Q4

REPORT INFORMATION
  Report Type: Spontaneous
  Country: US (occurrence: None)
  Receive Date: 20121214
  Receipt Date: 20121214
  Transmission Date: 20130627
  Serious: Yes (Life-Threatening, Hospitalization, Other)
  Sender: FDA-Public Use
  Company Number: ADR-2012-01790

PATIENT

DRUGS (1)
  1. LIORESAL INTRATHECAL (BACLOFEN INJECTION) 500 MCG/ML [Suspect]
     Dosage: 236 MCG/DAY

REACTIONS (8)
  - No therapeutic response [None]
  - Overdose [None]
  - Hypotension [None]
  - Unresponsive to stimuli [None]
  - Device computer issue [None]
  - Device occlusion [None]
  - Hypertonia [None]
  - Miosis [None]
